FAERS Safety Report 5562776-X (Version None)
Quarter: 2007Q4

REPORT INFORMATION
  Report Type: 
  Country: None (occurrence: None)
  Receive Date: 20071217
  Receipt Date: 20071206
  Transmission Date: 20080405
  Serious: Yes (Hospitalization, Other)
  Sender: FDA-Public Use
  Company Number: PL-AMGEN-UK224207

PATIENT
  Sex: Female
  Weight: 87 kg

DRUGS (10)
  1. ARANESP [Suspect]
     Indication: DIALYSIS
     Route: 042
     Dates: start: 20041216, end: 20060521
  2. IRON [Concomitant]
  3. ZINC [Concomitant]
  4. FOLIC ACID [Concomitant]
  5. CALCIUM [Concomitant]
  6. ASCORBIC ACID [Concomitant]
  7. VITAMIN D [Concomitant]
  8. METHYLDOPA [Concomitant]
  9. LABETALOL HYDROCHLORIDE [Concomitant]
  10. INSULIN [Concomitant]

REACTIONS (5)
  - BLOOD ALBUMIN DECREASED [None]
  - CAESAREAN SECTION [None]
  - LABILE BLOOD PRESSURE [None]
  - PREMATURE LABOUR [None]
  - THERAPEUTIC RESPONSE DECREASED [None]
